FAERS Safety Report 18307749 (Version 1)
Quarter: 2020Q3

REPORT INFORMATION
  Report Type: Spontaneous
  Country: DE (occurrence: DE)
  Receive Date: 20200924
  Receipt Date: 20200924
  Transmission Date: 20201103
  Serious: Yes (Hospitalization, Other)
  Sender: FDA-Public Use
  Company Number: DE-MICRO LABS LIMITED-ML2020-02793

PATIENT
  Age: 73 Year
  Sex: Male

DRUGS (12)
  1. ALLOPURINOL. [Concomitant]
     Active Substance: ALLOPURINOL
     Dosage: 300 MG, 0.5?0?0?0, TABLETS
     Route: 048
  2. ACETYLSALICYLIC ACID [Concomitant]
     Active Substance: ASPIRIN
     Dosage: 100 MG, 1?0?0?0, TABLETTEN
     Route: 048
  3. SIMVASTATIN. [Concomitant]
     Active Substance: SIMVASTATIN
     Dosage: 20 MG, 0?0?1?0, TABLETTEN
     Route: 048
  4. BRETARIS GENUAIR 322 MICROGRAMS [Concomitant]
     Dosage: 322 MCG, 1?0?1?0, METERED DOSE AEROSOL
     Route: 055
  5. AMLODIPIN [Concomitant]
     Active Substance: AMLODIPINE BESYLATE
     Dosage: 10 MG, 0.5?0?0.5?0, TABLETTEN
     Route: 048
  6. PANTOPRAZOL [Concomitant]
     Active Substance: PANTOPRAZOLE SODIUM
     Dosage: 40 MG, 1?0?0?0, TABLETTEN
     Route: 048
  7. METOPROLOL. [Concomitant]
     Active Substance: METOPROLOL
     Dosage: 23.75 MG, 0.5?0?0.5?0, SUSTAINED?RELEASE TABLETS
     Route: 048
  8. CLOPIDOGREL [Concomitant]
     Active Substance: CLOPIDOGREL BISULFATE
     Dosage: 75 MG, 1?0?0?0, TABLETTEN
  9. DICLOFENAC [Suspect]
     Active Substance: DICLOFENAC
     Dosage: 75 MG, IF NECESSARY, TABLETS
     Route: 048
  10. PARACETAMOL [Concomitant]
     Active Substance: ACETAMINOPHEN
     Dosage: 500 MG, IF NECESSARY, TABLETS
     Route: 048
  11. FLUTIFORM [Concomitant]
     Active Substance: FLUTICASONE PROPIONATE\FORMOTEROL FUMARATE
     Dosage: NK MG, 1?0?0?0, METERED DOSE INHALER
     Route: 055
  12. ACC 600MG TABS [Concomitant]
     Dosage: 600 MG, 1?0?1?0, EFFERVESCENT TABLETS
     Route: 048

REACTIONS (2)
  - Angina pectoris [Unknown]
  - Product prescribing error [Unknown]

NARRATIVE: CASE EVENT DATE: 20200718
